FAERS Safety Report 4368215-9 (Version None)
Quarter: 2004Q2

REPORT INFORMATION
  Report Type: 
  Country: None (occurrence: None)
  Receive Date: 20040527
  Receipt Date: 20040514
  Transmission Date: 20050107
  Serious: Yes (Hospitalization)
  Sender: FDA-Public Use
  Company Number: 2004-BP-02805NB

PATIENT
  Age: 77 Year
  Sex: Female

DRUGS (4)
  1. MEXITIL [Suspect]
     Indication: VENTRICULAR EXTRASYSTOLES
     Dosage: 250 MG
     Route: 048
     Dates: start: 20040331, end: 20040331
  2. FLUMETHOLON (FLUOROMETHOLONE) (TRA) [Suspect]
     Route: 031
     Dates: start: 20040331
  3. TENORMIN [Concomitant]
  4. LEVOFLOXACIN [Concomitant]

REACTIONS (4)
  - ENANTHEMA [None]
  - LYMPHOCYTE STIMULATION TEST POSITIVE [None]
  - RASH [None]
  - SWELLING FACE [None]
